FAERS Safety Report 7998780-1 (Version None)
Quarter: 2011Q4

REPORT INFORMATION
  Report Type: 
  Country: None (occurrence: None)
  Receive Date: 20111221
  Receipt Date: 20111027
  Transmission Date: 20120403
  Serious: Yes (Other)
  Sender: FDA-Public Use
  Company Number: US-PURDUE-USA-2011-0079893

PATIENT
  Sex: Male

DRUGS (1)
  1. OXYCONTIN [Suspect]
     Indication: PAIN MANAGEMENT
     Dosage: UNK
     Dates: start: 19980818, end: 20101218

REACTIONS (6)
  - INSOMNIA [None]
  - TOOTH LOSS [None]
  - DRY MOUTH [None]
  - DYSPNOEA [None]
  - HYPERTENSION [None]
  - DEPRESSION [None]
